FAERS Safety Report 10236103 (Version 1)
Quarter: 2014Q2

REPORT INFORMATION
  Report Type: Spontaneous
  Country: US (occurrence: US)
  Receive Date: 20140613
  Receipt Date: 20140613
  Transmission Date: 20141212
  Serious: Yes (Other)
  Sender: FDA-Public Use
  Company Number: US-JNJFOC-20140605483

PATIENT
  Age: 71 Year
  Sex: Female
  Weight: 107.5 kg

DRUGS (12)
  1. INVOKANA [Suspect]
     Indication: TYPE 2 DIABETES MELLITUS
     Route: 048
     Dates: start: 2013
  2. ASPIRIN [Concomitant]
     Indication: ANTICOAGULANT THERAPY
  3. AMLODIPINE [Concomitant]
     Dates: start: 2012
  4. CRESTOR [Concomitant]
     Dates: start: 2011
  5. ALLOPURINOL [Concomitant]
     Indication: GOUT
     Dates: start: 2012
  6. SPIRONOLACTONE [Concomitant]
     Indication: BLOOD PRESSURE
     Dates: start: 2011
  7. FUROSEMIDE [Concomitant]
     Indication: DIURETIC THERAPY
     Dates: start: 2002
  8. SOTALOL [Concomitant]
     Indication: BLOOD PRESSURE
     Dates: start: 2008
  9. SYNTHROID [Concomitant]
     Indication: THYROIDECTOMY
     Dates: start: 1969
  10. COQ10 [Concomitant]
     Dosage: 200MG-500MG-100MG
     Dates: start: 201312
  11. OMEGA 3 [Concomitant]
     Dosage: 200-500MG
     Dates: start: 201312
  12. L-CARNITINE [Concomitant]
     Dates: start: 201312

REACTIONS (4)
  - Alopecia [Not Recovered/Not Resolved]
  - Abnormal loss of weight [Not Recovered/Not Resolved]
  - Blood glucose increased [Recovered/Resolved]
  - Vulvovaginal mycotic infection [Not Recovered/Not Resolved]
